FAERS Safety Report 8920279 (Version 1)
Quarter: 2012Q4

REPORT INFORMATION
  Report Type: 
  Country: CA (occurrence: CA)
  Receive Date: 20121122
  Receipt Date: 20121122
  Transmission Date: 20130627
  Serious: Yes (Hospitalization)
  Sender: FDA-Public Use
  Company Number: CA-JNJFOC-20111103189

PATIENT
  Age: 14 Year
  Sex: Female
  Weight: 81.65 kg

DRUGS (2)
  1. REGULAR STRENGTH TYLENOL [Suspect]
     Indication: HEADACHE
     Dosage: 2 tablets every 4 hours
     Route: 048
     Dates: start: 20111023, end: 20111102
  2. REGULAR STRENGTH TYLENOL [Suspect]
     Indication: ABDOMINAL PAIN UPPER
     Dosage: 2 tablets every 4 hours
     Route: 048
     Dates: start: 20111023, end: 20111102

REACTIONS (3)
  - Vascular compression [Unknown]
  - Vomiting [Unknown]
  - Palpitations [Recovered/Resolved]
